FAERS Safety Report 24648671 (Version 1)
Quarter: 2024Q4

REPORT INFORMATION
  Report Type: Spontaneous
  Country: US (occurrence: US)
  Receive Date: 20241121
  Receipt Date: 20241121
  Transmission Date: 20250115
  Serious: No
  Sender: ALVOGEN
  Company Number: US-ALVOGEN-2024093230

PATIENT
  Sex: Female

DRUGS (2)
  1. TERIPARATIDE [Suspect]
     Active Substance: TERIPARATIDE
     Indication: Osteoporosis
     Dosage: SHE HAD BEEN USING IT FOR A YEAR AND TWO MONTHS. ?20 MCG, DAILY?250 MCG/ML
     Route: 058
     Dates: start: 20230111
  2. TERIPARATIDE [Suspect]
     Active Substance: TERIPARATIDE
     Indication: Osteoporosis
     Dosage: EXP. DATE: 31-MAR-2025, GOT THE NEW PEN ON 07-MAR-2024, ?20 MCG, DAILY?250 MCG/ML?ONGOING
     Route: 058
     Dates: start: 20240307

REACTIONS (2)
  - Device malfunction [Unknown]
  - Device operational issue [Unknown]

NARRATIVE: CASE EVENT DATE: 20240307
